FAERS Safety Report 8476246-2 (Version None)
Quarter: 2012Q2

REPORT INFORMATION
  Report Type: 
  Country: None (occurrence: None)
  Receive Date: 20120622
  Receipt Date: 20120611
  Transmission Date: 20120825
  Serious: Yes (Hospitalization)
  Sender: FDA-Public Use
  Company Number: 2012SP032171

PATIENT
  Age: 61 Year
  Sex: Male

DRUGS (3)
  1. BOCEPREVIR (SCH-503034) [Suspect]
     Indication: HEPATITIS C
     Dosage: 800 MG;TID;PO
     Route: 048
     Dates: start: 20120220
  2. PEGINTERFERON ALFA-2B [Suspect]
     Indication: HEPATITIS C
     Dates: start: 20120123
  3. RIBAVIRIN [Suspect]
     Dates: start: 20120123

REACTIONS (4)
  - MENIERE'S DISEASE [None]
  - VERTIGO [None]
  - FALL [None]
  - CONVULSION [None]
